FAERS Safety Report 23667294 (Version 1)
Quarter: 2024Q1

REPORT INFORMATION
  Report Type: Spontaneous
  Country: US (occurrence: US)
  Receive Date: 20240325
  Receipt Date: 20240325
  Transmission Date: 20240410
  Serious: No
  Sender: FDA-Public Use
  Company Number: US-ABBVIE-5684526

PATIENT
  Sex: Female

DRUGS (3)
  1. RESTASIS [Suspect]
     Active Substance: CYCLOSPORINE
     Indication: Dry eye
     Dosage: 0.5MG/ML
     Route: 047
     Dates: start: 2020, end: 20240307
  2. OASIS TEARS [Concomitant]
     Active Substance: GLYCERIN
     Indication: Dry eye
     Route: 065
  3. REFRESH CLASSIC [Concomitant]
     Active Substance: POLYVINYL ALCOHOL\POVIDONE
     Indication: Dry eye
     Route: 065

REACTIONS (1)
  - Lacrimation disorder [Recovered/Resolved]

NARRATIVE: CASE EVENT DATE: 20240301
